FAERS Safety Report 24243629 (Version 1)
Quarter: 2024Q3

REPORT INFORMATION
  Report Type: Spontaneous
  Country: CL (occurrence: CL)
  Receive Date: 20240823
  Receipt Date: 20240823
  Transmission Date: 20241017
  Serious: Yes (Other)
  Sender: AMGEN
  Company Number: CL-AMGEN-CHLSP2024164774

PATIENT

DRUGS (2)
  1. FILGRASTIM [Suspect]
     Active Substance: FILGRASTIM
     Indication: Haematopoietic stem cell mobilisation
     Dosage: 20 MILLIGRAM/KILOGRAM, QD, FIVE DAYS BEFORE APHERESIS
     Route: 065
  2. PLERIXAFOR [Concomitant]
     Active Substance: PLERIXAFOR
     Indication: Haematopoietic stem cell mobilisation
     Dosage: 0.24 MICROGRAM/KILOGRAM (A DAY BEFORE APHERESIS)

REACTIONS (8)
  - Blood stem cell harvest failure [Unknown]
  - Injection site pain [Unknown]
  - Influenza like illness [Unknown]
  - Abdominal pain [Unknown]
  - Drug ineffective [Unknown]
  - Musculoskeletal pain [Unknown]
  - Pyrexia [Unknown]
  - Diarrhoea [Unknown]
